FAERS Safety Report 9084826 (Version 1)
Quarter: 2013Q1

REPORT INFORMATION
  Report Type: Report from Study
  Country: US (occurrence: US)
  Receive Date: 20130131
  Receipt Date: 20130131
  Transmission Date: 20140127
  Serious: No
  Sender: FDA-Public Use
  Company Number: US-ABBOTT-12P-163-1010634-00

PATIENT
  Age: 49 Year
  Sex: Female

DRUGS (9)
  1. HUMIRA [Suspect]
     Indication: COLITIS ULCERATIVE
     Dates: start: 20121104, end: 20121104
  2. HUMIRA [Suspect]
     Dates: start: 20121118
  3. AMITRIPTYLINE [Concomitant]
     Indication: PAIN MANAGEMENT
  4. AMITRIPTYLINE [Concomitant]
     Indication: DEPRESSION
  5. AMITRIPTYLINE [Concomitant]
     Indication: SLEEP DISORDER THERAPY
  6. LEVOTHYROXINE [Concomitant]
     Indication: THYROID DISORDER
     Dosage: EVERY DAY
  7. FLAGYL [Concomitant]
     Indication: GASTROINTESTINAL DISORDER
  8. CYMBALTA [Concomitant]
     Indication: DEPRESSION
     Dosage: EVERY DAY
  9. TYLENOL [Concomitant]
     Indication: PAIN

REACTIONS (2)
  - Wrong technique in drug usage process [Unknown]
  - Drug dose omission [Unknown]
